FAERS Safety Report 8856937 (Version 1)
Quarter: 2012Q4

REPORT INFORMATION
  Report Type: 
  Country: US (occurrence: US)
  Receive Date: 20121023
  Receipt Date: 20121023
  Transmission Date: 20130627
  Serious: No
  Sender: FDA-Public Use
  Company Number: US-AMGEN-USASP2012055844

PATIENT
  Sex: Male

DRUGS (7)
  1. ENBREL [Suspect]
     Indication: PRODUCT USED FOR UNKNOWN INDICATION
     Dosage: 50 mg, qwk
     Route: 058
  2. METHOTREXATE [Concomitant]
     Dosage: 2.5 mg, UNK
  3. FOLIC ACID [Concomitant]
     Dosage: 1 mg, UNK
  4. VITAMIN D /00107901/ [Concomitant]
     Dosage: 1000 unit, UNK
  5. FISH OIL [Concomitant]
     Dosage: UNK
  6. CALCIUM D                          /00944201/ [Concomitant]
     Dosage: UNK
  7. PROBIOTIC                          /06395501/ [Concomitant]
     Dosage: UNK

REACTIONS (3)
  - Nasal congestion [Unknown]
  - Oropharyngeal pain [Unknown]
  - Ear pain [Unknown]
